FAERS Safety Report 14374701 (Version 2)
Quarter: 2018Q1

REPORT INFORMATION
  Report Type: Spontaneous
  Country: US (occurrence: US)
  Receive Date: 20180111
  Receipt Date: 20180117
  Transmission Date: 20180509
  Serious: Yes (Other)
  Sender: FDA-Public Use
  Company Number: US-TEVA-2018-US-843193

PATIENT
  Age: 63 Year
  Sex: Female

DRUGS (2)
  1. CORTISONE [Concomitant]
     Active Substance: CORTISONE\HYDROCORTISONE
  2. ACETAMINOPHEN W/OXYCODONE [Suspect]
     Active Substance: ACETAMINOPHEN\OXYCODONE HYDROCHLORIDE
     Indication: ANALGESIC THERAPY
     Dosage: ACETAMINOPHEN W/OXYCODONE : 10/325MG
     Route: 065
     Dates: start: 1973

REACTIONS (8)
  - Headache [Unknown]
  - Renal disorder [Unknown]
  - Myocardial infarction [Unknown]
  - Dyspepsia [Unknown]
  - Product physical issue [Unknown]
  - Abdominal discomfort [Unknown]
  - Product solubility abnormal [Unknown]
  - Throat irritation [Unknown]
